FAERS Safety Report 8699052 (Version 7)
Quarter: 2013Q1

REPORT INFORMATION
  Report Type: Report from Study
  Country: CA (occurrence: CA)
  Receive Date: 20120802
  Receipt Date: 20130115
  Transmission Date: 20140127
  Serious: Yes (Other)
  Sender: FDA-Public Use
  Company Number: CA-ROCHE-1091873

PATIENT
  Age: 56 None
  Sex: Male
  Weight: 65 kg

DRUGS (4)
  1. BEVACIZUMAB [Suspect]
     Indication: GLIOBLASTOMA
     Route: 042
  2. DEXAMETHASONE [Concomitant]
  3. DILANTIN [Concomitant]
  4. LOMUSTINE [Concomitant]
     Route: 065
     Dates: start: 20120831

REACTIONS (18)
  - Malignant neoplasm progression [Not Recovered/Not Resolved]
  - Convulsion [Recovered/Resolved]
  - Rectal haemorrhage [Recovered/Resolved]
  - Amnesia [Not Recovered/Not Resolved]
  - Hypersomnia [Not Recovered/Not Resolved]
  - Diarrhoea [Not Recovered/Not Resolved]
  - Dehydration [Not Recovered/Not Resolved]
  - Tongue dry [Not Recovered/Not Resolved]
  - Skin turgor decreased [Not Recovered/Not Resolved]
  - Agitation [Recovered/Resolved]
  - Decreased appetite [Not Recovered/Not Resolved]
  - Urinary incontinence [Not Recovered/Not Resolved]
  - Musculoskeletal stiffness [Not Recovered/Not Resolved]
  - Feeling cold [Not Recovered/Not Resolved]
  - Dyspnoea exertional [Not Recovered/Not Resolved]
  - Asthenia [Not Recovered/Not Resolved]
  - Drug level increased [Unknown]
  - Paraesthesia [Not Recovered/Not Resolved]
